FAERS Safety Report 9162673 (Version 2)
Quarter: 2013Q1

REPORT INFORMATION
  Report Type: Spontaneous
  Country: US (occurrence: None)
  Receive Date: 20130312
  Receipt Date: 20130327
  Transmission Date: 20140127
  Serious: Yes (Death, Other)
  Sender: FDA-Public Use
  Company Number: TPA2013A01989

PATIENT
  Age: 78 Year
  Sex: Male
  Weight: 83.92 kg

DRUGS (5)
  1. ACTOS (PIOGLITAZONE HYDROCHLORIDE) [Suspect]
     Indication: TYPE 2 DIABETES MELLITUS
     Dates: start: 200908, end: 201111
  2. AVANDIA (ROSIGLITAZONE MALEATE) [Concomitant]
  3. PRANDIN (REPAGLINIDE) [Concomitant]
  4. GLUCOTROL (GLIPIZIDE) [Concomitant]
  5. JANUVIA (SITAGLIPTIN PHOSPHATE) [Concomitant]

REACTIONS (1)
  - Bladder cancer [None]
